FAERS Safety Report 20478677 (Version 3)
Quarter: 2022Q1

REPORT INFORMATION
  Report Type: Spontaneous
  Country: FR (occurrence: FR)
  Receive Date: 20220216
  Receipt Date: 20220322
  Transmission Date: 20220423
  Serious: Yes (Other)
  Sender: FDA-Public Use
  Company Number: FR-JNJFOC-20220219285

PATIENT
  Sex: Female

DRUGS (1)
  1. IMBRUVICA [Suspect]
     Active Substance: IBRUTINIB
     Indication: Product used for unknown indication
     Dosage: 2 TABLETS PER DAY
     Route: 048

REACTIONS (4)
  - Rheumatoid arthritis [Unknown]
  - Product packaging issue [Unknown]
  - Off label use [Unknown]
  - Incorrect dose administered [Unknown]
